FAERS Safety Report 5241625-3 (Version None)
Quarter: 2007Q1

REPORT INFORMATION
  Report Type: 
  Country: None (occurrence: None)
  Receive Date: 20070215
  Receipt Date: 20070215
  Transmission Date: 20070707
  Serious: Yes (Hospitalization)
  Sender: FDA-Public Use
  Company Number: None

PATIENT
  Age: 52 Year
  Sex: Male
  Weight: 87.5442 kg

DRUGS (2)
  1. NORVIR [Suspect]
     Dosage: 100MG PO DAILY
  2. VIDEX [Suspect]
     Dosage: 250MG  PO  DAILY

REACTIONS (2)
  - ABDOMINAL PAIN [None]
  - PANCREATITIS ACUTE [None]
